FAERS Safety Report 5916554-X (Version None)
Quarter: 2008Q4

REPORT INFORMATION
  Report Type: 
  Country: None (occurrence: None)
  Receive Date: 20081013
  Receipt Date: 20081008
  Transmission Date: 20090506
  Serious: Yes (Other)
  Sender: FDA-Public Use
  Company Number: B0541182A

PATIENT
  Age: 79 Year
  Sex: Female

DRUGS (3)
  1. ARIXTRA [Suspect]
     Dosage: 2.5MG PER DAY
     Route: 058
     Dates: start: 20080705, end: 20080710
  2. INYESPRIN [Suspect]
     Indication: DRUG USE FOR UNKNOWN INDICATION
     Dosage: 1.35G THREE TIMES PER DAY
     Route: 042
     Dates: start: 20080705, end: 20080710
  3. PLAVIX [Suspect]
     Indication: DRUG USE FOR UNKNOWN INDICATION
     Dosage: 75MG PER DAY
     Route: 065
     Dates: start: 20080705

REACTIONS (2)
  - HAEMORRHAGIC ANAEMIA [None]
  - INJECTION SITE HAEMATOMA [None]
